FAERS Safety Report 25478462 (Version 3)
Quarter: 2025Q3

REPORT INFORMATION
  Report Type: Spontaneous
  Country: PR (occurrence: PR)
  Receive Date: 20250625
  Receipt Date: 20250904
  Transmission Date: 20251021
  Serious: No
  Sender: NOVARTIS
  Company Number: PR-002147023-NVSC2025PR101551

PATIENT

DRUGS (1)
  1. KESIMPTA [Suspect]
     Active Substance: OFATUMUMAB
     Indication: Product used for unknown indication
     Route: 065

REACTIONS (1)
  - Therapeutic response shortened [Unknown]
